FAERS Safety Report 5983241-1 (Version None)
Quarter: 2008Q4

REPORT INFORMATION
  Report Type: 
  Country: None (occurrence: None)
  Receive Date: 20081208
  Receipt Date: 20080408
  Transmission Date: 20090506
  Serious: No
  Sender: FDA-Public Use
  Company Number: US-BAYER-200811541BCC

PATIENT
  Age: 34 Year
  Sex: Female
  Weight: 88 kg

DRUGS (1)
  1. ALEVE [Suspect]
     Indication: DRUG USE FOR UNKNOWN INDICATION
     Dosage: AS USED: 440 MG  UNIT DOSE: 220 MG
     Route: 048
     Dates: start: 20080403

REACTIONS (5)
  - BURNING SENSATION [None]
  - FEELING OF BODY TEMPERATURE CHANGE [None]
  - HYPERSENSITIVITY [None]
  - PRURITUS [None]
  - RASH [None]
